FAERS Safety Report 4426225-7 (Version None)
Quarter: 2004Q3

REPORT INFORMATION
  Report Type: 
  Country: None (occurrence: None)
  Receive Date: 20040811
  Receipt Date: 20040727
  Transmission Date: 20050211
  Serious: Yes (Death)
  Sender: FDA-Public Use
  Company Number: EWC040639753

PATIENT
  Age: 39 Year
  Sex: Male
  Weight: 54.4316 kg

DRUGS (6)
  1. ZYPREXA [Suspect]
     Indication: AGITATION
     Dosage: 10 MG
     Dates: start: 20040601, end: 20040601
  2. RISPERDAL CONSTA [Concomitant]
  3. RIVOTRIL (CLONAZEPAM) [Concomitant]
  4. RISPERDAL [Concomitant]
  5. CLORAZEPATE DIPOTASSIUM [Concomitant]
  6. DEPAKENE [Concomitant]

REACTIONS (1)
  - SEDATION [None]
